FAERS Safety Report 15073837 (Version 1)
Quarter: 2018Q2

REPORT INFORMATION
  Report Type: Spontaneous
  Country: GB (occurrence: US)
  Receive Date: 20180627
  Receipt Date: 20180627
  Transmission Date: 20180711
  Serious: Yes (Death)
  Sender: FDA-Public Use
  Company Number: US-US WORLDMEDS, LLC-USW201806-000978

PATIENT
  Sex: Male

DRUGS (7)
  1. APOMORPHINE HYDROCHLORIDE [Suspect]
     Active Substance: APOMORPHINE HYDROCHLORIDE
     Indication: PRODUCT USED FOR UNKNOWN INDICATION
     Dates: start: 20160427
  2. GLICLAZIDE [Concomitant]
     Active Substance: GLICLAZIDE
  3. QUETIAPINE. [Concomitant]
     Active Substance: QUETIAPINE
  4. RIVASTIGMINE. [Concomitant]
     Active Substance: RIVASTIGMINE
  5. SELEGILINE [Concomitant]
     Active Substance: SELEGILINE
     Indication: PARKINSON^S DISEASE
  6. INSULIN [Concomitant]
     Active Substance: INSULIN NOS
  7. ROPINIROLE. [Concomitant]
     Active Substance: ROPINIROLE
     Indication: PARKINSON^S DISEASE

REACTIONS (1)
  - Renal impairment [Fatal]
